FAERS Safety Report 4509281-7 (Version None)
Quarter: 2004Q4

REPORT INFORMATION
  Report Type: 
  Country: None (occurrence: None)
  Receive Date: 20041025
  Receipt Date: 20040709
  Transmission Date: 20050328
  Serious: Yes (Other)
  Sender: FDA-Public Use
  Company Number: US-JNJFOC-20040702926

PATIENT
  Age: 56 Year
  Sex: Female

DRUGS (8)
  1. INFLIXIMAB (INFLIXIMAB, RECOMBINANT) LYOPHILIZED POWDER [Suspect]
     Indication: RHEUMATOID ARTHRITIS
     Dosage: 1 IN 4 WEEK, INTRAVENOUS
     Route: 042
     Dates: start: 20031003, end: 20031003
  2. INFLIXIMAB (INFLIXIMAB, RECOMBINANT) LYOPHILIZED POWDER [Suspect]
     Indication: RHEUMATOID ARTHRITIS
     Dosage: 1 IN 4 WEEK, INTRAVENOUS
     Route: 042
     Dates: start: 20010405
  3. METHOTREXATE SODIUM [Concomitant]
  4. PREDNISONE [Concomitant]
  5. PREVACID [Concomitant]
  6. MULTIVITAMIN (MULTIVITAMINS) [Concomitant]
  7. FOLIC ACID [Concomitant]
  8. PAXIL [Concomitant]

REACTIONS (1)
  - INFLUENZA LIKE ILLNESS [None]
